FAERS Safety Report 4297665-4 (Version None)
Quarter: 2004Q1

REPORT INFORMATION
  Report Type: 
  Country: None (occurrence: None)
  Receive Date: 20040213
  Receipt Date: 20040203
  Transmission Date: 20041129
  Serious: Yes (Hospitalization)
  Sender: FDA-Public Use
  Company Number: US-JNJFOC-20040201038

PATIENT
  Age: 45 Year
  Sex: Female
  Weight: 80.2867 kg

DRUGS (8)
  1. INFLIXIMAB (INFLIXIMAB, RECOMBINANT) LYOPHILIZED POWDER [Suspect]
     Indication: CROHN'S DISEASE
     Dosage: INTRAVENOUS
     Route: 042
  2. ANTIBIOTICS (ANTIBIOTICS) [Concomitant]
  3. NARCOTIC ANALGESICS (ANALGESICS) [Concomitant]
  4. ANTIDEPRESSANTS (ANTIDEPRESSANTS) [Concomitant]
  5. ANTISPASMOTICS (ANTISPASMOTICS; ANTICHOLINERGICS) [Concomitant]
  6. MERCAPTOPURINE [Concomitant]
  7. ENTOCORT (BUDESONIDE) [Concomitant]
  8. CORTICOSTEROIDS (CORTICOSTEROIDS) [Concomitant]

REACTIONS (6)
  - ABDOMINAL ADHESIONS [None]
  - CROHN'S DISEASE [None]
  - ERYTHEMA [None]
  - OPEN WOUND [None]
  - PERITONITIS [None]
  - POST PROCEDURAL COMPLICATION [None]
